FAERS Safety Report 20456860 (Version 2)
Quarter: 2022Q4

REPORT INFORMATION
  Report Type: Spontaneous
  Country: US (occurrence: US)
  Receive Date: 20220210
  Receipt Date: 20221029
  Transmission Date: 20230112
  Serious: No
  Sender: FDA-Public Use
  Company Number: US-SA-SAC20220205000395

PATIENT
  Age: 44 Year
  Sex: Female

DRUGS (8)
  1. KEVZARA [Suspect]
     Active Substance: SARILUMAB
     Indication: Rheumatoid arthritis
     Dosage: 200 MG, QOW
     Route: 058
     Dates: start: 202102
  2. KEVZARA [Suspect]
     Active Substance: SARILUMAB
     Dosage: 200 MG, QOW
     Route: 058
     Dates: start: 20210624
  3. ACETAMINOPHEN [Concomitant]
     Active Substance: ACETAMINOPHEN
     Dosage: UNK
     Route: 065
  4. ALEVE [Concomitant]
     Active Substance: NAPROXEN SODIUM
     Indication: Rheumatoid arthritis
     Dosage: UNK
  5. ZYRTEC [Concomitant]
     Active Substance: CETIRIZINE HYDROCHLORIDE
     Dosage: UNK
  6. LESSINA [Concomitant]
     Active Substance: ETHINYL ESTRADIOL\LEVONORGESTREL
     Dosage: UNK
  7. FOLIC ACID\IRON\MINERALS\VITAMINS [Concomitant]
     Active Substance: FOLIC ACID\IRON\MINERALS\VITAMINS
     Dosage: UNK
  8. HAIR SKIN NAILS [Concomitant]
     Dosage: UNK

REACTIONS (1)
  - COVID-19 [Unknown]
